FAERS Safety Report 25404213 (Version 4)
Quarter: 2025Q2

REPORT INFORMATION
  Report Type: Report from Study
  Country: US (occurrence: US)
  Receive Date: 20250606
  Receipt Date: 20250625
  Transmission Date: 20250717
  Serious: No
  Sender: SANDOZ
  Company Number: US-SANDOZ-SDZ2025US039180

PATIENT
  Age: 8 Year
  Sex: Female

DRUGS (2)
  1. OMNITROPE [Suspect]
     Active Substance: SOMATROPIN
     Indication: Product used for unknown indication
     Dosage: 0.14 ML, QD (5.8)
     Route: 058
     Dates: start: 20250604
  2. OMNITROPE [Suspect]
     Active Substance: SOMATROPIN
     Indication: Product used for unknown indication
     Dosage: 0.14 ML, QD (5.8)
     Route: 058
     Dates: start: 20250604

REACTIONS (8)
  - Rash [Unknown]
  - Musculoskeletal stiffness [Unknown]
  - Injection site erythema [Unknown]
  - Injection site swelling [Unknown]
  - Pain [Unknown]
  - Arthralgia [Unknown]
  - Adverse drug reaction [Unknown]
  - Poor quality product administered [Unknown]

NARRATIVE: CASE EVENT DATE: 20250604
